FAERS Safety Report 17072049 (Version 2)
Quarter: 2019Q4

REPORT INFORMATION
  Report Type: Report from Study
  Country: US (occurrence: US)
  Receive Date: 20191125
  Receipt Date: 20191227
  Transmission Date: 20200122
  Serious: Yes (Hospitalization)
  Sender: FDA-Public Use
  Company Number: US-EISAI MEDICAL RESEARCH-EC-2019-062193

PATIENT
  Age: 63 Year
  Sex: Female
  Weight: 129.54 kg

DRUGS (14)
  1. PROPRANOLOL [Concomitant]
     Active Substance: PROPRANOLOL HYDROCHLORIDE
  2. TRAZODONE [Concomitant]
     Active Substance: TRAZODONE HYDROCHLORIDE
  3. QUETIAPINE. [Concomitant]
     Active Substance: QUETIAPINE
  4. SPIRONOLACTONE. [Concomitant]
     Active Substance: SPIRONOLACTONE
  5. BOOST [Concomitant]
     Active Substance: DIETARY SUPPLEMENT
  6. ARIPIPRAZOLE. [Concomitant]
     Active Substance: ARIPIPRAZOLE
  7. MELOXICAM. [Concomitant]
     Active Substance: MELOXICAM
  8. MAGNESIUM [Concomitant]
     Active Substance: MAGNESIUM
  9. CYCLOBENZAPRINE. [Concomitant]
     Active Substance: CYCLOBENZAPRINE
  10. POTASSIUM [Concomitant]
     Active Substance: POTASSIUM
  11. LENVIMA [Suspect]
     Active Substance: LENVATINIB
     Indication: HEPATOCELLULAR CARCINOMA
     Route: 048
     Dates: start: 20190905, end: 20191209
  12. PROMETHAZINE [Concomitant]
     Active Substance: PROMETHAZINE HYDROCHLORIDE
  13. CALCIUM-MAGNESIUM-ZINC [Concomitant]
  14. MULTIVITAMINS (CALCIUM-MAGNESIUM-ZINC) [Concomitant]

REACTIONS (14)
  - Abdominal discomfort [Recovered/Resolved]
  - Nausea [Not Recovered/Not Resolved]
  - Renal disorder [Unknown]
  - Arthralgia [Unknown]
  - Neck pain [Unknown]
  - Muscle spasms [Not Recovered/Not Resolved]
  - Oral pain [Not Recovered/Not Resolved]
  - Pain in extremity [Unknown]
  - Blood pressure fluctuation [Unknown]
  - Gastric perforation [Unknown]
  - Abscess [Unknown]
  - Back pain [Not Recovered/Not Resolved]
  - Hypotension [Unknown]
  - Blood pressure increased [Unknown]

NARRATIVE: CASE EVENT DATE: 2019
